FAERS Safety Report 4628668-5 (Version None)
Quarter: 2005Q2

REPORT INFORMATION
  Report Type: 
  Country: None (occurrence: None)
  Receive Date: 20050406
  Receipt Date: 20041123
  Transmission Date: 20051028
  Serious: No
  Sender: FDA-Public Use
  Company Number: US-MERCK-0411USA03738

PATIENT
  Age: 71 Year
  Sex: Male
  Weight: 92 kg

DRUGS (2)
  1. VIOXX [Suspect]
     Route: 048
     Dates: start: 20020201, end: 20030101
  2. VIOXX [Suspect]
     Route: 048
     Dates: start: 20030102, end: 20031101

REACTIONS (5)
  - BLOOD PRESSURE INADEQUATELY CONTROLLED [None]
  - ESCHERICHIA INFECTION [None]
  - HYPERTENSION [None]
  - MEDICATION ERROR [None]
  - UROSEPSIS [None]
